FAERS Safety Report 22636576 (Version 1)
Quarter: 2023Q2

REPORT INFORMATION
  Report Type: Spontaneous
  Country: US (occurrence: US)
  Receive Date: 20230623
  Receipt Date: 20230623
  Transmission Date: 20230721
  Serious: No
  Sender: FDA-Public Use
  Company Number: US-PFIZER INC-PV202200084946

PATIENT
  Age: 75 Year
  Sex: Male
  Weight: 65.76 kg

DRUGS (8)
  1. INLYTA [Suspect]
     Active Substance: AXITINIB
     Indication: Renal cancer
     Dosage: 5 MG, DAILY
  2. INLYTA [Suspect]
     Active Substance: AXITINIB
     Dosage: 3 MG, DAILY
  3. INLYTA [Suspect]
     Active Substance: AXITINIB
     Dosage: 3 MG
  4. INLYTA [Suspect]
     Active Substance: AXITINIB
     Dosage: 3 MG, 2X/DAY
  5. INLYTA [Suspect]
     Active Substance: AXITINIB
     Dosage: 1 MG
  6. INLYTA [Suspect]
     Active Substance: AXITINIB
     Dosage: 3 MG (TWO PILLS IN THE MORNING AND ONE AT NIGHT OR VICE VERSA)
  7. INLYTA [Suspect]
     Active Substance: AXITINIB
     Dosage: 2 MG, 2X/DAY
     Dates: start: 202207
  8. KEYTRUDA [Concomitant]
     Active Substance: PEMBROLIZUMAB
     Dosage: UNK
     Dates: start: 202207

REACTIONS (3)
  - Oral pain [Not Recovered/Not Resolved]
  - Dry mouth [Not Recovered/Not Resolved]
  - Pain in extremity [Not Recovered/Not Resolved]

NARRATIVE: CASE EVENT DATE: 20230327
